FAERS Safety Report 8844985 (Version 1)
Quarter: 2012Q4

REPORT INFORMATION
  Report Type: 
  Country: JP (occurrence: JP)
  Receive Date: 20121017
  Receipt Date: 20121017
  Transmission Date: 20130627
  Serious: Yes (Hospitalization)
  Sender: FDA-Public Use
  Company Number: JP-009507513-2012SP031818

PATIENT
  Age: 70 Year
  Sex: Female
  Weight: 45 kg

DRUGS (6)
  1. PEGINTERFERON ALFA-2B [Suspect]
     Indication: HEPATITIS C
     Dosage: 1.5 microgram per kilogram, QW
     Route: 058
     Dates: start: 20120522, end: 20120528
  2. REBETOL [Suspect]
     Indication: HEPATITIS C
     Dosage: 600 mg, QD
     Route: 048
     Dates: start: 20120522, end: 20120528
  3. TELAVIC [Suspect]
     Indication: HEPATITIS C
     Dosage: 2250 mg, QD
     Route: 048
     Dates: start: 20120522, end: 20120528
  4. OLMETEC [Concomitant]
     Indication: HYPERTENSION
     Dosage: FORMULATION: UNKNOWN, START AND STOP DATE :UNKNOWN     (UPDATE 26JUN2012)
     Route: 048
     Dates: end: 20120806
  5. OLMETEC [Concomitant]
     Dosage: 20 mg, qd
     Route: 048
     Dates: start: 20120807
  6. IMIGRAN (SUMATRIPTAN SUCCINATE) [Concomitant]
     Indication: MIGRAINE
     Dosage: 100 mg, prn
     Route: 048

REACTIONS (1)
  - Rash [Recovering/Resolving]
